FAERS Safety Report 25993530 (Version 1)
Quarter: 2025Q4

REPORT INFORMATION
  Report Type: Report from Study
  Country: US (occurrence: US)
  Receive Date: 20251104
  Receipt Date: 20251104
  Transmission Date: 20260118
  Serious: Yes (Other)
  Sender: TAKEDA
  Company Number: US-TAKEDA-2025TUS087951

PATIENT
  Age: 47 Year
  Sex: Female
  Weight: 113 kg

DRUGS (3)
  1. VEDOLIZUMAB [Suspect]
     Active Substance: VEDOLIZUMAB
     Indication: Crohn^s disease
     Dosage: 300 MILLIGRAM
  2. FLAGYL [Suspect]
     Active Substance: METRONIDAZOLE\METRONIDAZOLE HYDROCHLORIDE
     Indication: Product used for unknown indication
     Dosage: UNK
  3. LYRICA [Concomitant]
     Active Substance: PREGABALIN
     Dosage: UNK

REACTIONS (7)
  - Neuropathy peripheral [Unknown]
  - Increased tendency to bruise [Unknown]
  - Sciatica [Unknown]
  - Pain [Unknown]
  - Alopecia [Unknown]
  - Nasopharyngitis [Recovered/Resolved]
  - Fibromyalgia [Unknown]
